FAERS Safety Report 7013081-6 (Version None)
Quarter: 2010Q3

REPORT INFORMATION
  Report Type: 
  Country: None (occurrence: None)
  Receive Date: 20100924
  Receipt Date: 20100914
  Transmission Date: 20110219
  Serious: Yes (Death)
  Sender: FDA-Public Use
  Company Number: US-PFIZER INC-2010092400

PATIENT
  Sex: Female
  Weight: 56.245 kg

DRUGS (3)
  1. AROMASIN [Suspect]
     Indication: BREAST CANCER
     Dosage: 25 MG, 1X/DAY
     Route: 048
     Dates: start: 20080602
  2. ACTONEL [Concomitant]
     Dosage: UNK
  3. IBANDRONATE SODIUM [Concomitant]
     Dosage: UNK

REACTIONS (2)
  - BREAST CANCER FEMALE [None]
  - DISEASE PROGRESSION [None]
